FAERS Safety Report 7412342-6 (Version None)
Quarter: 2011Q2

REPORT INFORMATION
  Report Type: 
  Country: None (occurrence: None)
  Receive Date: 20110408
  Receipt Date: 20110408
  Transmission Date: 20111010
  Serious: No
  Sender: FDA-Public Use
  Company Number: None

PATIENT
  Sex: Female

DRUGS (1)
  1. FLAGYL [Suspect]
     Indication: CLOSTRIDIUM DIFFICILE COLITIS
     Dosage: 500MG FOUR TIMES A DAY PO
     Route: 048
     Dates: start: 20110223, end: 20110330

REACTIONS (6)
  - DIARRHOEA [None]
  - INSOMNIA [None]
  - PARAESTHESIA [None]
  - HYPOAESTHESIA [None]
  - GAIT DISTURBANCE [None]
  - DIABETIC NEUROPATHY [None]
